FAERS Safety Report 4748929-9 (Version None)
Quarter: 2005Q3

REPORT INFORMATION
  Report Type: 
  Country: None (occurrence: None)
  Receive Date: 20050819
  Receipt Date: 20050310
  Transmission Date: 20060218
  Serious: Yes (Death, Hospitalization)
  Sender: FDA-Public Use
  Company Number: US-MERCK-0503USA01925

PATIENT
  Age: 66 Year
  Sex: Male
  Weight: 86 kg

DRUGS (12)
  1. VIOXX [Suspect]
     Indication: ARTHRITIS
     Route: 048
     Dates: start: 20000428, end: 20021125
  2. ELAVIL [Concomitant]
     Route: 048
  3. PRILOSEC [Concomitant]
     Route: 048
  4. POTASSIUM CHLORIDE [Concomitant]
     Route: 048
  5. COUMADIN [Concomitant]
     Route: 065
  6. LANOXIN [Concomitant]
     Route: 048
  7. LASIX [Concomitant]
     Route: 048
  8. COREG [Concomitant]
     Route: 048
  9. TEGRETOL [Concomitant]
     Route: 048
  10. BACLOFEN [Concomitant]
     Route: 048
  11. ZOLOFT [Concomitant]
     Route: 048
  12. AVAPRO [Concomitant]
     Route: 048

REACTIONS (7)
  - ANXIETY [None]
  - ATRIAL FIBRILLATION [None]
  - CARDIO-RESPIRATORY ARREST [None]
  - CEREBROVASCULAR ACCIDENT [None]
  - CONVULSION [None]
  - LOSS OF CONSCIOUSNESS [None]
  - PYREXIA [None]
